FAERS Safety Report 22105898 (Version 3)
Quarter: 2023Q2

REPORT INFORMATION
  Report Type: Spontaneous
  Country: US (occurrence: US)
  Receive Date: 20230317
  Receipt Date: 20230410
  Transmission Date: 20230721
  Serious: No
  Sender: FDA-Public Use
  Company Number: US-SANOFI-01527545

PATIENT
  Age: 82 Year
  Sex: Male

DRUGS (2)
  1. TOUJEO MAX [Suspect]
     Active Substance: INSULIN GLARGINE
     Indication: Diabetes mellitus
     Dosage: 28 U, QD
     Route: 058
     Dates: start: 20220511
  2. TOUJEO MAX [Suspect]
     Active Substance: INSULIN GLARGINE
     Dosage: 8 U

REACTIONS (3)
  - Blood glucose increased [Unknown]
  - Incorrect dose administered by device [Unknown]
  - Product dispensing error [Unknown]
